FAERS Safety Report 5066784-7 (Version None)
Quarter: 2006Q3

REPORT INFORMATION
  Report Type: 
  Country: None (occurrence: None)
  Receive Date: 20060801
  Receipt Date: 20060726
  Transmission Date: 20061208
  Serious: Yes (Other)
  Sender: FDA-Public Use
  Company Number: BE-JNJFOC-20060705393

PATIENT
  Sex: Female
  Weight: 98.2 kg

DRUGS (8)
  1. RISPERDAL CONSTA [Suspect]
     Route: 030
  2. RISPERDAL CONSTA [Suspect]
     Indication: SCHIZOPHRENIA, UNDIFFERENTIATED TYPE
     Route: 030
  3. QUETIAPINE FUMARATE [Concomitant]
  4. QUETIAPINE FUMARATE [Concomitant]
  5. QUETIAPINE FUMARATE [Concomitant]
  6. QUETIAPINE FUMARATE [Concomitant]
  7. QUETIAPINE FUMARATE [Concomitant]
  8. QUETIAPINE FUMARATE [Concomitant]

REACTIONS (3)
  - DIABETES MELLITUS NON-INSULIN-DEPENDENT [None]
  - HYPERINSULINISM [None]
  - HYPERPROLACTINAEMIA [None]
